FAERS Safety Report 6728509-6 (Version None)
Quarter: 2010Q2

REPORT INFORMATION
  Report Type: 
  Country: None (occurrence: None)
  Receive Date: 20100517
  Receipt Date: 20100511
  Transmission Date: 20101027
  Serious: Yes (Hospitalization)
  Sender: FDA-Public Use
  Company Number: US-PFIZER INC-2010018909

PATIENT
  Sex: Female

DRUGS (1)
  1. CHANTIX [Suspect]
     Indication: SMOKING CESSATION THERAPY
     Dosage: 0.5 MG, 1X/DAY
     Route: 048
     Dates: start: 20100201, end: 20100401

REACTIONS (6)
  - BACK INJURY [None]
  - CRYING [None]
  - FEAR [None]
  - NIGHT SWEATS [None]
  - NIGHTMARE [None]
  - SPINAL FRACTURE [None]
